FAERS Safety Report 5972725-8 (Version None)
Quarter: 2008Q4

REPORT INFORMATION
  Report Type: 
  Country: None (occurrence: None)
  Receive Date: 20081201
  Receipt Date: 20081031
  Transmission Date: 20090506
  Serious: No
  Sender: FDA-Public Use
  Company Number: US-BAYER-200837441NA

PATIENT
  Age: 29 Year
  Sex: Female

DRUGS (4)
  1. ULTRAVIST 370 [Suspect]
     Indication: ABDOMINAL PAIN
     Dosage: TOTAL DAILY DOSE: 120 ML  UNIT DOSE: 500 ML
     Route: 042
     Dates: start: 20081031, end: 20081031
  2. ULTRAVIST 370 [Suspect]
     Route: 042
  3. TRIAM [Concomitant]
  4. INHALER [Concomitant]

REACTIONS (4)
  - NASAL CONGESTION [None]
  - NASAL DISCOMFORT [None]
  - PRURITUS [None]
  - SNEEZING [None]
